FAERS Safety Report 6860486-X (Version None)
Quarter: 2010Q3

REPORT INFORMATION
  Report Type: 
  Country: None (occurrence: None)
  Receive Date: 20100720
  Receipt Date: 20100712
  Transmission Date: 20110219
  Serious: Yes (Death)
  Sender: FDA-Public Use
  Company Number: A0852465A

PATIENT
  Age: 28 Year
  Sex: Male
  Weight: 102.7 kg

DRUGS (2)
  1. FLOVENT [Suspect]
     Indication: PRODUCT USED FOR UNKNOWN INDICATION
     Dosage: 2PUFF TWICE PER DAY
     Route: 065
  2. VENTOLIN [Suspect]
     Indication: PRODUCT USED FOR UNKNOWN INDICATION
     Dosage: 100MCG AS REQUIRED
     Route: 065

REACTIONS (6)
  - ASTHMA [None]
  - DEATH [None]
  - DRUG INEFFECTIVE [None]
  - HYPERTENSION [None]
  - RESPIRATORY ARREST [None]
  - RESUSCITATION [None]
